FAERS Safety Report 17849791 (Version 4)
Quarter: 2020Q3

REPORT INFORMATION
  Report Type: Spontaneous
  Country: US (occurrence: US)
  Receive Date: 20200602
  Receipt Date: 20200819
  Transmission Date: 20201103
  Serious: No
  Sender: FDA-Public Use
  Company Number: US-PFIZER INC-2020213921

PATIENT
  Age: 84 Year
  Sex: Male

DRUGS (3)
  1. INLYTA [Suspect]
     Active Substance: AXITINIB
     Dosage: 5 MG, CYCLIC [1 BID (TWICE A DAY) FOR 4 DAYS, THEN 3 DAYS OFF]
     Dates: start: 20200721
  2. INLYTA [Suspect]
     Active Substance: AXITINIB
     Dosage: UNK(INLYTA TAB 5MG)
     Dates: start: 20200817
  3. INLYTA [Suspect]
     Active Substance: AXITINIB
     Dosage: 5 MG
     Dates: start: 20200324, end: 2020

REACTIONS (5)
  - Off label use [Unknown]
  - Neoplasm progression [Unknown]
  - Product use issue [Unknown]
  - Decreased appetite [Unknown]
  - Fatigue [Unknown]

NARRATIVE: CASE EVENT DATE: 2020
